FAERS Safety Report 25135862 (Version 1)
Quarter: 2025Q1

REPORT INFORMATION
  Report Type: Spontaneous
  Country: US (occurrence: US)
  Receive Date: 20250328
  Receipt Date: 20250328
  Transmission Date: 20250408
  Serious: Yes (Other)
  Sender: FARMAKEIO OUTSOURCING LLC
  Company Number: US-FarmaKeio Outsourcing, LLC-2170898

PATIENT
  Sex: Female
  Weight: 90.909 kg

DRUGS (4)
  1. TESTOSTERONE\TRIAMCINOLONE ACETONIDE [Suspect]
     Active Substance: TESTOSTERONE\TRIAMCINOLONE ACETONIDE
     Indication: Menopausal symptoms
  2. SIMVASTATIN [Concomitant]
     Active Substance: SIMVASTATIN
  3. PROGESTERONE [Concomitant]
     Active Substance: PROGESTERONE
  4. LISINOPRIL [Concomitant]
     Active Substance: LISINOPRIL

REACTIONS (1)
  - Application site oedema [Recovered/Resolved]
